FAERS Safety Report 5805888-5 (Version None)
Quarter: 2008Q3

REPORT INFORMATION
  Report Type: 
  Country: None (occurrence: None)
  Receive Date: 20080701
  Receipt Date: 20080701
  Transmission Date: 20090109
  Serious: Yes (Other)
  Sender: FDA-Public Use
  Company Number: OSCN-PR-0807S-0444

PATIENT
  Sex: Female

DRUGS (3)
  1. OMNISCAN [Suspect]
     Indication: DRUG USE FOR UNKNOWN INDICATION
     Dosage: , SINGLE DOSE
     Dates: start: 20041101, end: 20041101
  2. GADOPENTETATE DIMEGLUMINE (MAGNEVIST) [Concomitant]
  3. GADOLINIUM (UNSPECIFIED) [Concomitant]

REACTIONS (1)
  - NEPHROGENIC SYSTEMIC FIBROSIS [None]
